FAERS Safety Report 24054519 (Version 2)
Quarter: 2024Q3

REPORT INFORMATION
  Report Type: Spontaneous
  Country: PL (occurrence: PL)
  Receive Date: 20240705
  Receipt Date: 20240720
  Transmission Date: 20241017
  Serious: Yes (Other)
  Sender: AUROBINDO
  Company Number: PL-TEVA-VS-3209301

PATIENT
  Age: 25 Year
  Sex: Male

DRUGS (3)
  1. TOPIRAMATE [Suspect]
     Active Substance: TOPIRAMATE
     Indication: Migraine prophylaxis
     Dosage: 50 MILLIGRAM, TWO TIMES A DAY
     Route: 065
  2. TOPIRAMATE [Suspect]
     Active Substance: TOPIRAMATE
     Dosage: 100 MILLIGRAM, TWO TIMES A DAY (100-0-100 MG, 200 MG OF TOPIRAMATE DAILY)
     Route: 065
  3. ZOLMITRIPTAN [Suspect]
     Active Substance: ZOLMITRIPTAN
     Indication: Headache
     Dosage: 5 MILLIGRAM
     Route: 065

REACTIONS (3)
  - Nephrolithiasis [Unknown]
  - Depressed mood [Unknown]
  - Therapeutic product effect incomplete [Unknown]
